FAERS Safety Report 5047468-8 (Version None)
Quarter: 2006Q3

REPORT INFORMATION
  Report Type: 
  Country: None (occurrence: None)
  Receive Date: 20060703
  Receipt Date: 20060620
  Transmission Date: 20061208
  Serious: Yes (Death)
  Sender: FDA-Public Use
  Company Number: 430025M06USA

PATIENT
  Age: 57 Year
  Sex: Male
  Weight: 111.1 kg

DRUGS (29)
  1. NOVANTRONE [Suspect]
     Indication: ACUTE MYELOID LEUKAEMIA
     Dosage: 18  MG, 1 IN 1 DAYS, INTRAVENOUS (NOT OTHERWISE SPECIFIED)
     Route: 042
     Dates: start: 20060310, end: 20060315
  2. NOVANTRONE [Suspect]
     Indication: ACUTE MYELOID LEUKAEMIA
     Dosage: 18  MG, 1 IN 1 DAYS, INTRAVENOUS (NOT OTHERWISE SPECIFIED)
     Route: 042
     Dates: start: 20060331, end: 20060404
  3. CEP-701 (INVESTIGATIONAL DRUG) [Suspect]
     Dosage: 80 MG, 2 IN 1 DAYS, ORAL
     Route: 048
     Dates: start: 20060317, end: 20060424
  4. ETOPOSIDE [Suspect]
     Dosage: 230 MG, 1 IN 1 DAYS, INTRAVENOUS
     Route: 042
     Dates: start: 20060310, end: 20060315
  5. ETOPOSIDE [Suspect]
     Dosage: 230 MG, 1 IN 1 DAYS, INTRAVENOUS
     Route: 042
     Dates: start: 20060331, end: 20060404
  6. CYTARABINE [Suspect]
     Dosage: 2.3 MG, 1 IN 1 DAYS, INTRAVENOUS
     Route: 042
     Dates: start: 20060310, end: 20060315
  7. CYTARABINE [Suspect]
     Dosage: 2.3 MG, 1 IN 1 DAYS, INTRAVENOUS
     Route: 042
     Dates: start: 20060331, end: 20060404
  8. ACETAMINOPHEN [Concomitant]
  9. ALLOPURINOL [Concomitant]
  10. ACYCLOVIR [Concomitant]
  11. AZTREONAM (AZTREONAM) [Concomitant]
  12. METRONIDAZOLE [Concomitant]
  13. VANCOMYCIN [Concomitant]
  14. AMILALIN (AMPICILLIN TRIHYDRATE) [Concomitant]
  15. AMPHOTERICIN B [Concomitant]
  16. AZITHROMYCIN [Concomitant]
  17. CASPOFUNGIN (CASPOFUNGIN) [Concomitant]
  18. LINEZOLID [Concomitant]
  19. STREPTOMYCIN [Concomitant]
  20. NYSTATIN [Concomitant]
  21. CIPROFLOXACIN [Concomitant]
  22. NEUPOGEN [Concomitant]
  23. DIPHENHYDRAMINE HCL [Concomitant]
  24. ESOMEPRAZOLE (ESOMEPRAZOLE) [Concomitant]
  25. FUROSEMIDE [Concomitant]
  26. HYDROCHLOROTHIAZIDE [Concomitant]
  27. ASPIRIN [Concomitant]
  28. LOPERAMIDE HCL [Concomitant]
  29. VITAMIN SUPPLEMENTS (VITAMINS) [Concomitant]

REACTIONS (2)
  - PANCYTOPENIA [None]
  - SEPTIC SHOCK [None]
